FAERS Safety Report 23734368 (Version 1)
Quarter: 2024Q2

REPORT INFORMATION
  Report Type: Spontaneous
  Country: RU (occurrence: RU)
  Receive Date: 20240412
  Receipt Date: 20240412
  Transmission Date: 20240716
  Serious: Yes (Other)
  Sender: FDA-Public Use
  Company Number: RU-Merck Healthcare KGaA-2024018686

PATIENT
  Age: 39 Year
  Sex: Male
  Weight: 95 kg

DRUGS (3)
  1. MAVENCLAD [Suspect]
     Active Substance: CLADRIBINE
     Indication: Multiple sclerosis
     Dosage: COURSE ONE WEEK ONE THERAPY.
     Route: 048
     Dates: start: 20220227, end: 20220303
  2. MAVENCLAD [Suspect]
     Active Substance: CLADRIBINE
     Dosage: COURSE ONE WEEK TWO THERAPY.
     Route: 048
     Dates: start: 20220331, end: 20220404
  3. MAVENCLAD [Suspect]
     Active Substance: CLADRIBINE
     Dosage: COURSE TWO THERAPY.
     Route: 048
     Dates: start: 20230302

REACTIONS (1)
  - Renal neoplasm [Unknown]

NARRATIVE: CASE EVENT DATE: 20240101
